FAERS Safety Report 14146557 (Version 6)
Quarter: 2019Q3

REPORT INFORMATION
  Report Type: Report from Study
  Country: US (occurrence: US)
  Receive Date: 20171031
  Receipt Date: 20190903
  Transmission Date: 20191004
  Serious: Yes (Other)
  Sender: FDA-Public Use
  Company Number: US-ARIAD PHARMACEUTICALS, INC-2017US009154

PATIENT
  Sex: Female

DRUGS (2)
  1. LINZESS [Suspect]
     Active Substance: LINACLOTIDE
     Indication: PRODUCT USED FOR UNKNOWN INDICATION
     Dosage: UNK
     Route: 065
  2. PONATINIB [Suspect]
     Active Substance: PONATINIB
     Indication: MYELOFIBROSIS
     Dosage: 45 MG, QD
     Route: 048
     Dates: start: 20171005

REACTIONS (9)
  - Neoplasm progression [Unknown]
  - Constipation [Unknown]
  - Vomiting [Unknown]
  - Off label use [Unknown]
  - Malaise [Unknown]
  - Cardiac disorder [Unknown]
  - Extrasystoles [Unknown]
  - Pain in extremity [Unknown]
  - White blood cell count abnormal [Unknown]
